FAERS Safety Report 14519450 (Version 2)
Quarter: 2018Q2

REPORT INFORMATION
  Report Type: Spontaneous
  Country: PT (occurrence: PT)
  Receive Date: 20180212
  Receipt Date: 20180415
  Transmission Date: 20180711
  Serious: Yes (Hospitalization)
  Sender: FDA-Public Use
  Company Number: PHHY2017PT200671

PATIENT
  Age: 45 Year
  Sex: Female

DRUGS (1)
  1. DESLORATADINE. [Suspect]
     Active Substance: DESLORATADINE
     Indication: RHINITIS ALLERGIC
     Dosage: UNK
     Route: 065

REACTIONS (1)
  - Nasal septum perforation [Recovered/Resolved]

NARRATIVE: CASE EVENT DATE: 1997
